FAERS Safety Report 15472572 (Version 1)
Quarter: 2018Q4

REPORT INFORMATION
  Report Type: Spontaneous
  Country: CL (occurrence: CL)
  Receive Date: 20181008
  Receipt Date: 20181008
  Transmission Date: 20190205
  Serious: Yes (Death, Hospitalization, Other)
  Sender: FDA-Public Use
  Company Number: CL-LUPIN PHARMACEUTICALS INC.-2018-06980

PATIENT
  Age: 62 Year
  Sex: Female

DRUGS (2)
  1. BUPROPION. [Suspect]
     Active Substance: BUPROPION
     Indication: PRODUCT USED FOR UNKNOWN INDICATION
     Dosage: 9.5 G, UNK
     Route: 048
     Dates: start: 201702
  2. CHLORPROMAZINE. [Concomitant]
     Active Substance: CHLORPROMAZINE
     Indication: PRODUCT USED FOR UNKNOWN INDICATION
     Dosage: 1.5 G, UNK
     Route: 048
     Dates: start: 201702

REACTIONS (12)
  - Hypotension [Fatal]
  - Altered state of consciousness [Fatal]
  - Overdose [Fatal]
  - Electrocardiogram QT prolonged [Fatal]
  - Seizure [Fatal]
  - Cardiac arrest [Fatal]
  - Coma [Fatal]
  - Toxicity to various agents [Fatal]
  - Gaze palsy [Fatal]
  - Eye disorder [Fatal]
  - Hypoxia [Fatal]
  - Tachycardia [Fatal]
